FAERS Safety Report 20596423 (Version 2)
Quarter: 2022Q1

REPORT INFORMATION
  Report Type: Spontaneous
  Country: PL (occurrence: PL)
  Receive Date: 20220315
  Receipt Date: 20220329
  Transmission Date: 20220423
  Serious: Yes (Hospitalization, Other)
  Sender: FDA-Public Use
  Company Number: PL-NOVARTISPH-NVSC2022PL057906

PATIENT
  Age: 85 Year
  Sex: Male

DRUGS (15)
  1. RAMIPRIL [Suspect]
     Active Substance: RAMIPRIL
     Indication: Product used for unknown indication
     Dosage: 5 MG, 1 TABLET IN MORNING
     Route: 065
  2. RAMIPRIL [Suspect]
     Active Substance: RAMIPRIL
     Dosage: 2.5 MG, 1 TABLET IN MORNING
     Route: 065
  3. BISOPROLOL [Suspect]
     Active Substance: BISOPROLOL
     Indication: Product used for unknown indication
     Dosage: 5 MG, 1 TABLET IN THE MORNING
     Route: 065
  4. BISOPROLOL [Suspect]
     Active Substance: BISOPROLOL
     Dosage: 3.75 MG, 1 TABLET IN THE MORNING
     Route: 065
  5. BISOPROLOL [Suspect]
     Active Substance: BISOPROLOL
     Dosage: 2.5 MG 1 TABLET IN THE MORNING
     Route: 065
  6. ALLOPURINOL [Suspect]
     Active Substance: ALLOPURINOL
     Indication: Product used for unknown indication
     Dosage: 300 MG, 1 TABLET IN THE MORNING
     Route: 065
  7. TORSEMIDE [Suspect]
     Active Substance: TORSEMIDE
     Indication: Product used for unknown indication
     Dosage: 20 MG, 1 TABLET IN THE EVENING
     Route: 065
     Dates: start: 2019
  8. TORSEMIDE [Suspect]
     Active Substance: TORSEMIDE
     Dosage: 10 MG, 1 TABLET AT NOON
     Route: 065
     Dates: start: 2019
  9. TORSEMIDE [Suspect]
     Active Substance: TORSEMIDE
     Indication: Product used for unknown indication
     Dosage: 10 MG, 1 TABLET AT NOON
     Route: 065
     Dates: start: 2019
  10. EPLERENONE [Suspect]
     Active Substance: EPLERENONE
     Indication: Product used for unknown indication
     Dosage: 25 MG, 1 TABLET IN THE MORNING
     Route: 065
  11. FUROSEMIDE [Suspect]
     Active Substance: FUROSEMIDE
     Indication: Product used for unknown indication
     Dosage: UNK, 3 X 2 TABLET
     Route: 065
  12. ATORVASTATIN [Suspect]
     Active Substance: ATORVASTATIN
     Indication: Product used for unknown indication
     Dosage: 40 MG, 1 TABLET IN THE EVENING
     Route: 065
  13. HYDROCHLOROTHIAZIDE [Suspect]
     Active Substance: HYDROCHLOROTHIAZIDE
     Indication: Product used for unknown indication
     Dosage: 25 MG, 1 TABLET IN THE MORNING
     Route: 065
  14. INSULIN NOS [Concomitant]
     Active Substance: INSULIN NOS
     Indication: Diabetes mellitus
     Dosage: UNK
     Route: 065
  15. SACUBITRIL\VALSARTAN [Concomitant]
     Active Substance: SACUBITRIL\VALSARTAN
     Indication: Product used for unknown indication
     Dosage: 24/26 MG 2 X 1 TABLET IN THE MORNING AND EVENING
     Route: 065

REACTIONS (7)
  - Cardiac failure [Unknown]
  - Acute kidney injury [Unknown]
  - Cardiogenic shock [Unknown]
  - Pulmonary oedema [Unknown]
  - Hypotension [Unknown]
  - Renal function test abnormal [Unknown]
  - Iron deficiency [Unknown]

NARRATIVE: CASE EVENT DATE: 20190101
